FAERS Safety Report 20110672 (Version 1)
Quarter: 2021Q4

REPORT INFORMATION
  Report Type: Spontaneous
  Country: DE (occurrence: DE)
  Receive Date: 20211124
  Receipt Date: 20211124
  Transmission Date: 20220304
  Serious: Yes (Life-Threatening, Hospitalization)
  Sender: FDA-Public Use
  Company Number: DE-TEVA-2021-DE-1980091

PATIENT
  Age: 19 Year
  Sex: Female

DRUGS (3)
  1. CISPLATIN [Suspect]
     Active Substance: CISPLATIN
     Indication: Ovarian germ cell tumour
     Route: 065
  2. ETOPOSIDE [Suspect]
     Active Substance: ETOPOSIDE
     Indication: Ovarian germ cell tumour
     Route: 065
  3. BLEOMYCIN [Suspect]
     Active Substance: BLEOMYCIN SULFATE
     Indication: Ovarian germ cell tumour
     Route: 065

REACTIONS (10)
  - Viral myocarditis [Recovered/Resolved]
  - Parvovirus B19 infection [Recovered/Resolved]
  - Cardiac failure [Recovered/Resolved]
  - Cardiogenic shock [Recovered/Resolved]
  - Respiratory failure [Recovered/Resolved]
  - Escherichia bacteraemia [Recovered/Resolved]
  - Streptococcal bacteraemia [Recovered/Resolved]
  - Mitral valve incompetence [Recovered/Resolved]
  - Pulmonary congestion [Recovered/Resolved]
  - Pleural effusion [Recovered/Resolved]
